FAERS Safety Report 4854374-8 (Version None)
Quarter: 2005Q4

REPORT INFORMATION
  Report Type: 
  Country: None (occurrence: None)
  Receive Date: 20051213
  Receipt Date: 20051128
  Transmission Date: 20060501
  Serious: Yes (Disabling)
  Sender: FDA-Public Use
  Company Number: CERZ-11068

PATIENT
  Age: 49 Year
  Sex: Female
  Weight: 75 kg

DRUGS (5)
  1. CEREZYME [Suspect]
     Indication: GAUCHER'S DISEASE
     Dosage: 1600 UNITS Q2WKS IV
     Route: 042
     Dates: start: 20051114, end: 20051114
  2. CEREZYME [Suspect]
     Indication: GAUCHER'S DISEASE
     Dosage: 20 U/KG Q2WKS IV
     Route: 042
     Dates: start: 19990203, end: 19990308
  3. PREDNISONE 50MG TAB [Concomitant]
  4. ANTIHISTAMINE [Concomitant]
  5. PARACETAMOL [Concomitant]

REACTIONS (5)
  - CHILLS [None]
  - DYSPNOEA [None]
  - GENERALISED OEDEMA [None]
  - MIGRAINE [None]
  - PERIORBITAL OEDEMA [None]
